FAERS Safety Report 8592905-5 (Version None)
Quarter: 2012Q3

REPORT INFORMATION
  Report Type: 
  Country: None (occurrence: None)
  Receive Date: 20120814
  Receipt Date: 20120809
  Transmission Date: 20120928
  Serious: Yes (Other)
  Sender: FDA-Public Use
  Company Number: US-TEVA-348181USA

PATIENT
  Sex: Female

DRUGS (3)
  1. LEVORA 0.15/30-21 [Concomitant]
  2. FLAGYL [Concomitant]
     Indication: VAGINITIS BACTERIAL
     Route: 048
     Dates: start: 20120501, end: 20120501
  3. CLARAVIS [Suspect]
     Dosage: 40 MILLIGRAM DAILY;
     Dates: start: 20100209, end: 20100301

REACTIONS (1)
  - UNINTENDED PREGNANCY [None]
